FAERS Safety Report 10818390 (Version 1)
Quarter: 2015Q1

REPORT INFORMATION
  Report Type: Spontaneous
  Country: US (occurrence: US)
  Receive Date: 20150218
  Receipt Date: 20150218
  Transmission Date: 20150721
  Serious: No
  Sender: FDA-Public Use
  Company Number: US-EISAI MEDICAL RESEARCH-E2080-00682-SPO-US

PATIENT
  Age: 3 Year
  Sex: Female
  Weight: 15.4 kg

DRUGS (9)
  1. BANZEL [Suspect]
     Active Substance: RUFINAMIDE
     Indication: SEIZURE
     Dosage: 80 MG
     Route: 048
     Dates: start: 20131112, end: 20131209
  2. ONFI [Concomitant]
     Active Substance: CLOBAZAM
  3. LEUKOVORIN [Concomitant]
     Active Substance: LEUCOVORIN SODIUM
  4. CLOBAZAM [Concomitant]
     Active Substance: CLOBAZAM
  5. RANITIDINE [Concomitant]
     Active Substance: RANITIDINE\RANITIDINE HYDROCHLORIDE
  6. BANZEL [Suspect]
     Active Substance: RUFINAMIDE
     Dosage: 360 MG
     Route: 048
  7. BANZEL [Suspect]
     Active Substance: RUFINAMIDE
     Dosage: DOWN TITRATION (NOT SPECIFIED)
     Route: 048
     Dates: end: 20140331
  8. BANZEL [Suspect]
     Active Substance: RUFINAMIDE
     Dosage: 240 MG
     Route: 048
     Dates: start: 20131210
  9. SABRIL [Concomitant]
     Active Substance: VIGABATRIN

REACTIONS (3)
  - Aggression [Recovering/Resolving]
  - Insomnia [Recovering/Resolving]
  - Decreased appetite [Recovering/Resolving]

NARRATIVE: CASE EVENT DATE: 20131210
